FAERS Safety Report 9367143 (Version 1)
Quarter: 2013Q2

REPORT INFORMATION
  Report Type: Spontaneous
  Country: US (occurrence: US)
  Receive Date: 20130625
  Receipt Date: 20130625
  Transmission Date: 20140414
  Serious: No
  Sender: FDA-Public Use
  Company Number: US-ASTELLAS-2012US004853

PATIENT
  Sex: Male

DRUGS (2)
  1. VESICARE [Suspect]
     Indication: PROSTATIC DISORDER
     Dosage: 5 MG, UID/QD
     Route: 048
     Dates: start: 20120515
  2. VESICARE [Suspect]
     Indication: URINARY TRACT INFECTION

REACTIONS (2)
  - Drug ineffective for unapproved indication [Unknown]
  - Nausea [Unknown]
